FAERS Safety Report 13379758 (Version 1)
Quarter: 2017Q1

REPORT INFORMATION
  Report Type: Spontaneous
  Country: US (occurrence: US)
  Receive Date: 20170328
  Receipt Date: 20170328
  Transmission Date: 20170429
  Serious: Yes (Other)
  Sender: FDA-Public Use
  Company Number: US-009507513-1703USA010192

PATIENT
  Age: 92 Year
  Sex: Female

DRUGS (9)
  1. ASPIRIN. [Suspect]
     Active Substance: ASPIRIN
     Dosage: 81 MG, QD
     Route: 048
     Dates: start: 20170107
  2. CYANOCOBALAMIN. [Suspect]
     Active Substance: CYANOCOBALAMIN
     Dosage: 1 DF, QM
     Route: 030
     Dates: start: 20170107
  3. ENSURE [Concomitant]
     Active Substance: AMINO ACIDS\DEXTROSE\ELECTROLYTES NOS\SOYBEAN OIL\VITAMINS
  4. CETIRIZINE HYDROCHLORIDE. [Concomitant]
     Active Substance: CETIRIZINE HYDROCHLORIDE
     Dosage: 10 MG, AS NEEDED
     Route: 048
     Dates: start: 20170107
  5. DONEPEZIL. [Concomitant]
     Active Substance: DONEPEZIL
     Dosage: 1 DF BID
     Dates: start: 20170107
  6. MAJOR BISMATROL [Concomitant]
     Dosage: STRENGTH: 262 MG/15ML
     Route: 048
     Dates: start: 20170107
  7. DILTIAZEM. [Concomitant]
     Active Substance: DILTIAZEM
     Dosage: 120 MG, QD
     Route: 048
     Dates: start: 20170101
  8. ADVAIR HFA [Concomitant]
     Active Substance: FLUTICASONE PROPIONATE\SALMETEROL XINAFOATE
     Dosage: 1 PUPP TWO TIMES DAILY
     Route: 045
     Dates: start: 20170127
  9. CALCIUM (UNSPECIFIED) (+) MAGNESIUM (UNSPECIFIED) (+) VITAMIN D (UNSPE [Concomitant]
     Dosage: STRENGTH: 500-250-200 MG-MG-UNIT
     Route: 048
     Dates: start: 20170107

REACTIONS (7)
  - Chronic obstructive pulmonary disease [Unknown]
  - Urinary incontinence [Unknown]
  - Anal incontinence [Unknown]
  - Dementia [Unknown]
  - Surgery [Unknown]
  - Gait disturbance [Unknown]
  - Abnormal loss of weight [Unknown]

NARRATIVE: CASE EVENT DATE: 2017
